APPROVED DRUG PRODUCT: IBUPROFEN
Active Ingredient: IBUPROFEN
Strength: 800MG
Dosage Form/Route: TABLET;ORAL
Application: A091625 | Product #003 | TE Code: AB
Applicant: GRANULES INDIA LTD
Approved: Sep 15, 2015 | RLD: No | RS: No | Type: RX